FAERS Safety Report 8395921-1 (Version None)
Quarter: 2012Q2

REPORT INFORMATION
  Report Type: 
  Country: None (occurrence: None)
  Receive Date: 20120530
  Receipt Date: 20120523
  Transmission Date: 20120825
  Serious: Yes (Other)
  Sender: FDA-Public Use
  Company Number: US-ELI_LILLY_AND_COMPANY-US201202007426

PATIENT
  Sex: Male

DRUGS (31)
  1. LANTUS [Concomitant]
     Dosage: 50 U, AT NIGHT
     Dates: start: 20090223
  2. LANTUS [Concomitant]
     Dosage: 35 U, AT NIGHT
     Dates: start: 20100104
  3. VITAMIN D [Concomitant]
     Dosage: 2000 U, QD
     Dates: start: 20101229
  4. OMEPRAZOLE [Concomitant]
     Dosage: 20 MG, QD
     Dates: start: 20100405, end: 20101229
  5. SIMVASTATIN [Concomitant]
     Dosage: 40 MG, QD
  6. NORVASC [Concomitant]
     Dosage: 10 MG, QD
     Dates: start: 20101209
  7. METOPROLOL TARTRATE [Concomitant]
     Dosage: 50 MG, QD
     Dates: start: 20101229, end: 20111220
  8. XANAX [Concomitant]
     Dosage: 1.0 MG, TID
     Dates: start: 20100104
  9. HUMALOG [Suspect]
     Indication: TYPE 2 DIABETES MELLITUS
     Dosage: 10 U, SLIDING SCALE
     Dates: start: 20090831
  10. LANTUS [Concomitant]
     Dosage: SLIDING SCALE
     Dates: start: 20090518
  11. LANTUS [Concomitant]
     Dosage: 40 U, AT NIGHT
     Dates: start: 20090831
  12. SIMVASTATIN [Concomitant]
     Dosage: NO MORE THAN 20 MG, QD
  13. PAXIL [Concomitant]
     Dosage: 40 MG, QD
     Dates: start: 20110329
  14. LISINOPRIL [Concomitant]
     Dosage: 5 MG, QD
     Dates: start: 20100525
  15. LISINOPRIL [Concomitant]
     Dosage: 5 MG, QD
     Dates: start: 20110719
  16. DOXAZOSIN MESYLATE [Concomitant]
     Dosage: 2 MG, BID
     Dates: start: 20101109
  17. DOXAZOSIN MESYLATE [Concomitant]
     Dosage: 2 MG, BID
     Dates: start: 20111109
  18. LISINOPRIL [Concomitant]
     Dosage: 20 MG, QD
     Dates: start: 20090831, end: 20100405
  19. ASPIRIN [Concomitant]
     Dosage: 81 MG, QD
     Dates: start: 20060731
  20. LIPITOR [Concomitant]
     Dosage: 20 MG, QD
     Dates: start: 20060731, end: 20120402
  21. PROPRANOLOL [Concomitant]
     Dosage: 20 MG, BID
     Dates: start: 20111220
  22. LANTUS [Concomitant]
     Dosage: 30 U, AT NIGHT
  23. LANTUS [Concomitant]
     Dosage: 25 U, AT NIGHT
     Dates: start: 20060731
  24. LANTUS [Concomitant]
     Dosage: 25 U, AT NIGHT
     Dates: start: 20101109
  25. AMLODIPINE BESYLATE [Concomitant]
     Dosage: 5 MG, QD
  26. VITAMIN D [Concomitant]
     Dosage: 50000 U, WEEKLY (1/W)
     Dates: start: 20100525
  27. LANTUS [Concomitant]
     Dosage: 40 U, AT NIGHT
     Dates: start: 20071203
  28. NORVASC [Concomitant]
     Dosage: 5 MG, QD
     Dates: start: 20120402
  29. METOPROLOL TARTRATE [Concomitant]
     Dosage: 50 MG, BID
     Dates: start: 20100405
  30. PAXIL [Concomitant]
     Dosage: 20 MG, QD
     Dates: start: 20101229
  31. OMEPRAZOLE [Concomitant]
     Dosage: 20 MG, QD
     Dates: start: 20110322

REACTIONS (1)
  - PARKINSON'S DISEASE [None]
